FAERS Safety Report 26034741 (Version 1)
Quarter: 2025Q4

REPORT INFORMATION
  Report Type: Report from Study
  Country: US (occurrence: US)
  Receive Date: 20251112
  Receipt Date: 20251112
  Transmission Date: 20260117
  Serious: Yes (Other)
  Sender: GILEAD
  Company Number: US-GILEAD-2025-0735569

PATIENT
  Age: 73 Year
  Sex: Female

DRUGS (1)
  1. SELADELPAR [Suspect]
     Active Substance: SELADELPAR
     Indication: Primary biliary cholangitis
     Dosage: 10 MG CAPSULE BY MOUTH ONCE DAILY
     Route: 048
     Dates: start: 20241209

REACTIONS (5)
  - Choking [Unknown]
  - Gastric ulcer [Unknown]
  - Dysphagia [Unknown]
  - Fall [Unknown]
  - Dysphonia [Unknown]
